FAERS Safety Report 12196747 (Version 4)
Quarter: 2016Q2

REPORT INFORMATION
  Report Type: Report from Study
  Country: US (occurrence: US)
  Receive Date: 20160321
  Receipt Date: 20160526
  Transmission Date: 20160815
  Serious: Yes (Hospitalization)
  Sender: FDA-Public Use
  Company Number: US-ACTELION-A-NJ2016-133130

PATIENT
  Age: 67 Year
  Sex: Female

DRUGS (2)
  1. ADCIRCA [Concomitant]
     Active Substance: TADALAFIL
  2. MACITENTAN [Suspect]
     Active Substance: MACITENTAN
     Indication: PULMONARY ARTERIAL HYPERTENSION
     Dosage: 10 MG, QD
     Route: 048
     Dates: start: 20160225

REACTIONS (9)
  - Fluid retention [Unknown]
  - Pneumonia [Unknown]
  - Hepatic enzyme increased [Recovered/Resolved]
  - Renal failure [Unknown]
  - Hepatomegaly [Unknown]
  - Aspiration pleural cavity [Unknown]
  - Hepatitis [Recovered/Resolved]
  - Chest pain [Unknown]
  - Cardiac disorder [Unknown]
